FAERS Safety Report 6899062-1 (Version None)
Quarter: 2010Q3

REPORT INFORMATION
  Report Type: 
  Country: None (occurrence: None)
  Receive Date: 20100802
  Receipt Date: 20071227
  Transmission Date: 20110219
  Serious: No
  Sender: FDA-Public Use
  Company Number: US-PFIZER INC-2007088408

PATIENT
  Age: 50 Year
  Sex: Male
  Weight: 113.4 kg

DRUGS (7)
  1. LYRICA [Suspect]
     Indication: LUMBAR RADICULOPATHY
     Route: 048
     Dates: start: 20070824
  2. FLEXERIL [Concomitant]
     Route: 048
  3. TENORETIC 100 [Concomitant]
     Dosage: 50/25MG
     Route: 048
  4. LOTREL [Concomitant]
     Dosage: 10/20MG
     Route: 048
  5. LIPITOR [Concomitant]
     Route: 048
  6. FENTANYL [Concomitant]
     Dosage: NA EVERY 3 DAYS
  7. ZETIA [Concomitant]
     Route: 048

REACTIONS (2)
  - SWELLING [None]
  - TESTICULAR PAIN [None]
